FAERS Safety Report 14948042 (Version 7)
Quarter: 2020Q3

REPORT INFORMATION
  Report Type: Report from Study
  Country: GR (occurrence: GR)
  Receive Date: 20180529
  Receipt Date: 20191113
  Transmission Date: 20201104
  Serious: Yes (Hospitalization)
  Sender: FDA-Public Use
  Company Number: PHHO2018GR006207

PATIENT
  Age: 76 Year
  Sex: Male
  Weight: 97 kg

DRUGS (5)
  1. SPARTALIZUMAB [Suspect]
     Active Substance: SPARTALIZUMAB
     Indication: MALIGNANT MELANOMA
     Dosage: 400 MG, Q4W
     Route: 042
     Dates: start: 20180403
  2. TRAMETINIB [Suspect]
     Active Substance: TRAMETINIB
     Dosage: 2 MG, QD
     Route: 048
     Dates: start: 20180519
  3. DABRAFENIB [Suspect]
     Active Substance: DABRAFENIB
     Dosage: 300 MG, BID
     Route: 048
     Dates: start: 20180519
  4. TRAMETINIB [Suspect]
     Active Substance: TRAMETINIB
     Indication: MALIGNANT MELANOMA
     Dosage: 2 MG, QD
     Route: 048
     Dates: start: 20180403
  5. DABRAFENIB [Suspect]
     Active Substance: DABRAFENIB
     Indication: METASTATIC MALIGNANT MELANOMA
     Dosage: 300 MG, BID
     Route: 048
     Dates: start: 20180403

REACTIONS (1)
  - Hypophysitis [Recovering/Resolving]

NARRATIVE: CASE EVENT DATE: 20180506
